FAERS Safety Report 18146905 (Version 2)
Quarter: 2020Q4

REPORT INFORMATION
  Report Type: Spontaneous
  Country: US (occurrence: US)
  Receive Date: 20200813
  Receipt Date: 20201223
  Transmission Date: 20210113
  Serious: No
  Sender: FDA-Public Use
  Company Number: US-AMGEN-USASP2020127122

PATIENT
  Age: 69 Year
  Sex: Female

DRUGS (2)
  1. HYDROCHLOROTHIAZIDE. [Concomitant]
     Active Substance: HYDROCHLOROTHIAZIDE
     Dosage: UNK
  2. REPATHA [Suspect]
     Active Substance: EVOLOCUMAB
     Indication: BLOOD CHOLESTEROL INCREASED
     Dosage: 140 MILLIGRAM, Q2WK
     Route: 065
     Dates: start: 2020, end: 20200816

REACTIONS (6)
  - Muscle spasms [Unknown]
  - Blood glucose increased [Unknown]
  - Tinnitus [Recovering/Resolving]
  - Pain in extremity [Unknown]
  - Productive cough [Unknown]
  - Joint contracture [Recovering/Resolving]

NARRATIVE: CASE EVENT DATE: 2020
